FAERS Safety Report 11677344 (Version 3)
Quarter: 2015Q4

REPORT INFORMATION
  Report Type: Report from Study
  Country: CA (occurrence: CA)
  Receive Date: 20151028
  Receipt Date: 20151230
  Transmission Date: 20160304
  Serious: Yes (Hospitalization)
  Sender: FDA-Public Use
  Company Number: CA-KADMON PHARMACEUTICALS, LLC-KAD201510-003760

PATIENT
  Sex: Male

DRUGS (11)
  1. RIBAVIRIN 600 MG TABLETS [Suspect]
     Active Substance: RIBAVIRIN
     Indication: HEPATITIS C
     Route: 048
     Dates: start: 20150516, end: 20150808
  2. AMLODIPINE [Concomitant]
     Active Substance: AMLODIPINE BESYLATE
  3. TERAZOSIN [Concomitant]
     Active Substance: TERAZOSIN\TERAZOSIN HYDROCHLORIDE
     Route: 048
  4. CO-DIOVAN [Concomitant]
     Active Substance: HYDROCHLOROTHIAZIDE\VALSARTAN
  5. METFORMIN [Concomitant]
     Active Substance: METFORMIN HYDROCHLORIDE
     Dosage: TABLET
  6. HOLKIRA PAK [Suspect]
     Active Substance: DASABUVIR\OMBITASVIR\PARITAPREVIR\RITONAVIR
     Indication: HEPATITIS C
     Dosage: 2 12.5/75/50 MG TABLET DAILY/1 250 MG TAB 2X
     Route: 048
     Dates: start: 20150516, end: 20150808
  7. BISOPROLOL [Concomitant]
     Active Substance: BISOPROLOL
  8. LASIX [Suspect]
     Active Substance: FUROSEMIDE
     Dates: start: 2015
  9. SYNTHROID [Concomitant]
     Active Substance: LEVOTHYROXINE SODIUM
     Indication: HYPOTHYROIDISM
  10. TAMSULOSIN CR [Concomitant]
     Active Substance: TAMSULOSIN
  11. POTASSIUM [Concomitant]
     Active Substance: POTASSIUM

REACTIONS (5)
  - Oedema peripheral [Unknown]
  - Renal function test abnormal [Unknown]
  - Dyspnoea [Unknown]
  - Cardiac failure [Unknown]
  - Pulmonary oedema [Unknown]

NARRATIVE: CASE EVENT DATE: 2015
